FAERS Safety Report 26119298 (Version 1)
Quarter: 2025Q4

REPORT INFORMATION
  Report Type: Spontaneous
  Country: US (occurrence: US)
  Receive Date: 20251204
  Receipt Date: 20251204
  Transmission Date: 20260118
  Serious: No
  Sender: ACCORD
  Company Number: US-Accord-509095

PATIENT

DRUGS (1)
  1. LEVOTHYROXINE SODIUM [Suspect]
     Active Substance: LEVOTHYROXINE SODIUM
     Indication: Thyroid disorder
     Dosage: STRENGTH: 25 MCG
     Dates: start: 202510

REACTIONS (2)
  - Adverse drug reaction [Unknown]
  - Product substitution issue [Unknown]

NARRATIVE: CASE EVENT DATE: 20251001
